FAERS Safety Report 25611706 (Version 2)
Quarter: 2025Q3

REPORT INFORMATION
  Report Type: Report from Study
  Country: US (occurrence: US)
  Receive Date: 20250728
  Receipt Date: 20250731
  Transmission Date: 20251021
  Serious: Yes (Hospitalization)
  Sender: TAKEDA
  Company Number: US-TAKEDA-2025TUS026414

PATIENT
  Sex: Male

DRUGS (8)
  1. BRIGATINIB [Suspect]
     Active Substance: BRIGATINIB
     Indication: Lung neoplasm malignant
     Dosage: 180 MILLIGRAM, QD
     Dates: start: 202501
  2. BRIGATINIB [Suspect]
     Active Substance: BRIGATINIB
     Dosage: 90 MILLIGRAM, QD
     Dates: start: 202503
  3. ATORVASTATIN [Concomitant]
     Active Substance: ATORVASTATIN
  4. BISOPROLOL [Concomitant]
     Active Substance: BISOPROLOL
  5. ELIQUIS [Concomitant]
     Active Substance: APIXABAN
  6. LOPERAMIDE [Concomitant]
     Active Substance: LOPERAMIDE
  7. MEMANTINE [Concomitant]
     Active Substance: MEMANTINE
  8. OMEPRAZOLE [Concomitant]
     Active Substance: OMEPRAZOLE

REACTIONS (4)
  - Dehydration [Recovering/Resolving]
  - Lethargy [Recovering/Resolving]
  - Product dose omission issue [Recovering/Resolving]
  - Diarrhoea [Unknown]
